FAERS Safety Report 10717820 (Version 1)
Quarter: 2015Q1

REPORT INFORMATION
  Report Type: Spontaneous
  Country: CH (occurrence: CH)
  Receive Date: 20150116
  Receipt Date: 20150116
  Transmission Date: 20150721
  Serious: Yes (Other)
  Sender: FDA-Public Use
  Company Number: CH-ASTRAZENECA-2015SE02684

PATIENT
  Age: 50 Year
  Sex: Male

DRUGS (11)
  1. AMLODIPINE [Concomitant]
     Active Substance: AMLODIPINE BESYLATE
     Indication: ESSENTIAL HYPERTENSION
     Route: 048
     Dates: start: 2012
  2. PROPRANOLOL [Concomitant]
     Active Substance: PROPRANOLOL\PROPRANOLOL HYDROCHLORIDE
     Route: 048
     Dates: start: 2007
  3. ESOMEPRAZOL [Suspect]
     Active Substance: ESOMEPRAZOLE
     Route: 048
  4. LOSARTAN [Concomitant]
     Active Substance: LOSARTAN
     Indication: ESSENTIAL HYPERTENSION
     Route: 048
     Dates: start: 2012
  5. TAMBOCOR [Concomitant]
     Active Substance: FLECAINIDE ACETATE
     Indication: SUPRAVENTRICULAR TACHYARRHYTHMIA
     Route: 048
     Dates: start: 2005
  6. CRESTOR [Suspect]
     Active Substance: ROSUVASTATIN CALCIUM
     Indication: HYPERLIPIDAEMIA
     Route: 048
     Dates: start: 2007, end: 2012
  7. SORTIS [Interacting]
     Active Substance: ATORVASTATIN
     Indication: HYPERLIPIDAEMIA
     Route: 048
     Dates: start: 2012, end: 201410
  8. EZETROL [Concomitant]
     Active Substance: EZETIMIBE
     Indication: HYPERLIPIDAEMIA
     Route: 048
     Dates: start: 2012
  9. ASPIRIN. [Suspect]
     Active Substance: ASPIRIN
     Route: 048
     Dates: start: 2011
  10. PREVISCAN [Suspect]
     Active Substance: FLUINDIONE
     Indication: SUPRAVENTRICULAR TACHYARRHYTHMIA
     Route: 048
     Dates: start: 2005
  11. FEXOFENADINE [Concomitant]
     Active Substance: FEXOFENADINE\FEXOFENADINE HYDROCHLORIDE
     Route: 048

REACTIONS (7)
  - Tendon rupture [Recovered/Resolved]
  - Drug interaction [Unknown]
  - Tendon injury [Unknown]
  - Haemarthrosis [Recovered/Resolved]
  - Spontaneous haematoma [Unknown]
  - Traumatic haematoma [Unknown]
  - Ligament injury [Recovered/Resolved]

NARRATIVE: CASE EVENT DATE: 2013
